FAERS Safety Report 9981492 (Version 1)
Quarter: 2014Q1

REPORT INFORMATION
  Report Type: Spontaneous
  Country: US (occurrence: US)
  Receive Date: 20140307
  Receipt Date: 20140307
  Transmission Date: 20141002
  Serious: No
  Sender: FDA-Public Use
  Company Number: US-GLAXOSMITHKLINE-A1054312A

PATIENT
  Sex: Male

DRUGS (3)
  1. FABIOR [Suspect]
     Indication: ACNE
     Dosage: 1APP SINGLE DOSE
     Route: 061
     Dates: start: 20131217, end: 20131217
  2. ALOE VERA [Concomitant]
  3. UNKNOWN MEDICATION [Concomitant]

REACTIONS (3)
  - Burning sensation [Not Recovered/Not Resolved]
  - Skin exfoliation [Unknown]
  - Skin discolouration [Unknown]
